FAERS Safety Report 9149361 (Version 1)
Quarter: 2013Q1

REPORT INFORMATION
  Report Type: Spontaneous
  Country: US (occurrence: None)
  Receive Date: 20130301
  Receipt Date: 20130301
  Transmission Date: 20140127
  Serious: No
  Sender: FDA-Public Use
  Company Number: None

PATIENT
  Age: 28 Year
  Sex: Female

DRUGS (1)
  1. TUBERCULIN NOS [Suspect]
     Dosage: FOREARM
     Dates: start: 20121204

REACTIONS (2)
  - Erythema [None]
  - Pruritus [None]
